FAERS Safety Report 5238662-1 (Version None)
Quarter: 2007Q1

REPORT INFORMATION
  Report Type: 
  Country: None (occurrence: None)
  Receive Date: 20070214
  Receipt Date: 20070214
  Transmission Date: 20070707
  Serious: Yes (Hospitalization)
  Sender: FDA-Public Use
  Company Number: None

PATIENT
  Age: 87 Year
  Sex: Male
  Weight: 70.7611 kg

DRUGS (5)
  1. ASPIRIN [Suspect]
     Dosage: 81 MG DAILY
  2. ALBUTEROL SOLN, INHL [Concomitant]
  3. LUNISOLIDE INHL, NASAL [Concomitant]
  4. LACTATED RINGER'S INJ, SOLN [Concomitant]
  5. METOPROLOL TARTRATE [Concomitant]

REACTIONS (1)
  - HAEMATURIA [None]
